FAERS Safety Report 4688198-1 (Version None)
Quarter: 2005Q2

REPORT INFORMATION
  Report Type: 
  Country: None (occurrence: None)
  Receive Date: 20050610
  Receipt Date: 20040917
  Transmission Date: 20051028
  Serious: Yes (Life-Threatening)
  Sender: FDA-Public Use
  Company Number: DE-ABBOTT-04P-062-0273839-00

PATIENT
  Sex: Male

DRUGS (11)
  1. CLARITHROMYCIN [Suspect]
     Indication: HELICOBACTER INFECTION
     Route: 048
     Dates: start: 20040713
  2. CLARITHROMYCIN [Suspect]
     Indication: GASTRITIS
  3. PANTOPRAZOLE [Interacting]
     Indication: HELICOBACTER INFECTION
     Route: 048
     Dates: start: 20040713
  4. PANTOPRAZOLE [Interacting]
     Indication: GASTRITIS
  5. AMOXICILLIN [Interacting]
     Indication: HELICOBACTER INFECTION
     Route: 048
     Dates: start: 20040713
  6. AMOXICILLIN [Interacting]
     Indication: GASTRITIS
  7. CARBAMAZEPINE [Interacting]
     Indication: EPILEPSY
     Route: 048
  8. PHENYTOIN [Concomitant]
     Indication: EPILEPSY
     Route: 048
  9. BUPRENORPHINE HCL [Concomitant]
     Indication: MENTAL DISORDER
     Route: 048
  10. BUPRENORPHINE HCL [Concomitant]
     Indication: ABNORMAL BEHAVIOUR
  11. BUPRENORPHINE HCL [Concomitant]
     Indication: DRUG ABUSER

REACTIONS (5)
  - DRUG INTERACTION [None]
  - DYSPNOEA [None]
  - HYPERHIDROSIS [None]
  - PANIC REACTION [None]
  - TACHYCARDIA [None]
